FAERS Safety Report 16969755 (Version 3)
Quarter: 2019Q4

REPORT INFORMATION
  Report Type: Spontaneous
  Country: IT (occurrence: IT)
  Receive Date: 20191029
  Receipt Date: 20191112
  Transmission Date: 20200122
  Serious: Yes (Death)
  Sender: FDA-Public Use
  Company Number: IT-PFIZER INC-2019462303

PATIENT
  Age: 69 Year
  Sex: Male

DRUGS (5)
  1. PROPOFOL. [Interacting]
     Active Substance: PROPOFOL
     Dosage: 200 MG, UNK
     Route: 042
  2. MORPHINE [Interacting]
     Active Substance: MORPHINE
     Dosage: 20 MG, UNK
     Route: 042
  3. PROMAZINE [Interacting]
     Active Substance: PROMAZINE
     Dosage: UNK
     Route: 042
  4. CHLORPROMAZINE. [Interacting]
     Active Substance: CHLORPROMAZINE
     Dosage: UNK
     Route: 042
  5. MIDAZOLAM HCL [Suspect]
     Active Substance: MIDAZOLAM HYDROCHLORIDE
     Dosage: 60 MG, UNK
     Route: 065

REACTIONS (3)
  - Coma [Fatal]
  - Overdose [Fatal]
  - Drug interaction [Fatal]

NARRATIVE: CASE EVENT DATE: 20130409
